FAERS Safety Report 19441987 (Version 1)
Quarter: 2021Q2

REPORT INFORMATION
  Report Type: Spontaneous
  Country: US (occurrence: US)
  Receive Date: 20210618
  Receipt Date: 20210618
  Transmission Date: 20210717
  Serious: No
  Sender: FDA-Public Use
  Company Number: None

PATIENT
  Age: 62 Year
  Sex: Male
  Weight: 107.9 kg

DRUGS (14)
  1. TAFINLAR [Suspect]
     Active Substance: DABRAFENIB MESYLATE
     Indication: LUNG NEOPLASM MALIGNANT
     Route: 048
     Dates: start: 20210526
  2. VICTOZA [Concomitant]
     Active Substance: LIRAGLUTIDE
  3. ROSUVASTATIN. [Concomitant]
     Active Substance: ROSUVASTATIN
  4. FUROSEMIDE. [Concomitant]
     Active Substance: FUROSEMIDE
  5. DIGOXIN. [Concomitant]
     Active Substance: DIGOXIN
  6. METFORMIN [Concomitant]
     Active Substance: METFORMIN HYDROCHLORIDE
  7. LOSARTAN. [Concomitant]
     Active Substance: LOSARTAN
  8. CARVEDILOL. [Concomitant]
     Active Substance: CARVEDILOL
  9. SPIRONOLACTONE. [Concomitant]
     Active Substance: SPIRONOLACTONE
  10. ELIQUIS [Concomitant]
     Active Substance: APIXABAN
  11. NOVOLOG [Concomitant]
     Active Substance: INSULIN ASPART
  12. JARDIANCE [Concomitant]
     Active Substance: EMPAGLIFLOZIN
  13. TRESIBA [Concomitant]
     Active Substance: INSULIN DEGLUDEC
  14. ASPIRIN. [Concomitant]
     Active Substance: ASPIRIN

REACTIONS (1)
  - Pyrexia [None]

NARRATIVE: CASE EVENT DATE: 20210618
